FAERS Safety Report 25995173 (Version 1)
Quarter: 2025Q4

REPORT INFORMATION
  Report Type: Spontaneous
  Country: EU (occurrence: EU)
  Receive Date: 20251104
  Receipt Date: 20251104
  Transmission Date: 20260117
  Serious: Yes (Other)
  Sender: MYLAN
  Company Number: EU-MYLANLABS-2025M1092752

PATIENT
  Age: 29 Year
  Sex: Female

DRUGS (56)
  1. GEMCITABINE [Suspect]
     Active Substance: GEMCITABINE
     Indication: Diffuse large B-cell lymphoma
     Dosage: UNK, R-GEMOX REGIMEN
  2. GEMCITABINE [Suspect]
     Active Substance: GEMCITABINE
     Dosage: UNK, R-GEMOX REGIMEN
     Route: 065
  3. GEMCITABINE [Suspect]
     Active Substance: GEMCITABINE
     Dosage: UNK, R-GEMOX REGIMEN
     Route: 065
  4. GEMCITABINE [Suspect]
     Active Substance: GEMCITABINE
     Dosage: UNK, R-GEMOX REGIMEN
  5. OXALIPLATIN [Suspect]
     Active Substance: OXALIPLATIN
     Indication: Diffuse large B-cell lymphoma
     Dosage: UNK, R-GEMOX REGIMEN
  6. OXALIPLATIN [Suspect]
     Active Substance: OXALIPLATIN
     Dosage: UNK, R-GEMOX REGIMEN
     Route: 065
  7. OXALIPLATIN [Suspect]
     Active Substance: OXALIPLATIN
     Dosage: UNK, R-GEMOX REGIMEN
     Route: 065
  8. OXALIPLATIN [Suspect]
     Active Substance: OXALIPLATIN
     Dosage: UNK, R-GEMOX REGIMEN
  9. DOXORUBICIN [Suspect]
     Active Substance: DOXORUBICIN
     Indication: Diffuse large B-cell lymphoma
     Dosage: UNK, R-CHOP REGIMEN
  10. DOXORUBICIN [Suspect]
     Active Substance: DOXORUBICIN
     Dosage: UNK, R-CHOP REGIMEN
     Route: 065
  11. DOXORUBICIN [Suspect]
     Active Substance: DOXORUBICIN
     Dosage: UNK, R-CHOP REGIMEN
     Route: 065
  12. DOXORUBICIN [Suspect]
     Active Substance: DOXORUBICIN
     Dosage: UNK, R-CHOP REGIMEN
  13. PREDNISONE [Suspect]
     Active Substance: PREDNISONE
     Indication: Diffuse large B-cell lymphoma
     Dosage: UNK, R-CHOP REGIMEN
  14. PREDNISONE [Suspect]
     Active Substance: PREDNISONE
     Dosage: UNK, R-CHOP REGIMEN
     Route: 065
  15. PREDNISONE [Suspect]
     Active Substance: PREDNISONE
     Dosage: UNK, R-CHOP REGIMEN
     Route: 065
  16. PREDNISONE [Suspect]
     Active Substance: PREDNISONE
     Dosage: UNK, R-CHOP REGIMEN
  17. RITUXIMAB [Suspect]
     Active Substance: RITUXIMAB
     Indication: Diffuse large B-cell lymphoma
     Dosage: UNK, R-GEMOX REGIMEN
  18. RITUXIMAB [Suspect]
     Active Substance: RITUXIMAB
     Dosage: UNK, R-GEMOX REGIMEN
  19. RITUXIMAB [Suspect]
     Active Substance: RITUXIMAB
     Dosage: UNK, R-GEMOX REGIMEN
     Route: 065
  20. RITUXIMAB [Suspect]
     Active Substance: RITUXIMAB
     Dosage: UNK, R-GEMOX REGIMEN
     Route: 065
  21. RITUXIMAB [Suspect]
     Active Substance: RITUXIMAB
     Dosage: UNK, R-ICE REGIMEN
  22. RITUXIMAB [Suspect]
     Active Substance: RITUXIMAB
     Dosage: UNK, R-ICE REGIMEN
  23. RITUXIMAB [Suspect]
     Active Substance: RITUXIMAB
     Dosage: UNK, R-ICE REGIMEN
     Route: 065
  24. RITUXIMAB [Suspect]
     Active Substance: RITUXIMAB
     Dosage: UNK, R-ICE REGIMEN
     Route: 065
  25. RITUXIMAB [Suspect]
     Active Substance: RITUXIMAB
     Dosage: UNK, R-CHOP REGIMEN
  26. RITUXIMAB [Suspect]
     Active Substance: RITUXIMAB
     Dosage: UNK, R-CHOP REGIMEN
     Route: 065
  27. RITUXIMAB [Suspect]
     Active Substance: RITUXIMAB
     Dosage: UNK, R-CHOP REGIMEN
  28. RITUXIMAB [Suspect]
     Active Substance: RITUXIMAB
     Dosage: UNK, R-CHOP REGIMEN
     Route: 065
  29. IFOSFAMIDE [Suspect]
     Active Substance: IFOSFAMIDE
     Indication: Diffuse large B-cell lymphoma
     Dosage: UNK, R-ICE REGIMEN
  30. IFOSFAMIDE [Suspect]
     Active Substance: IFOSFAMIDE
     Dosage: UNK, R-ICE REGIMEN
     Route: 065
  31. IFOSFAMIDE [Suspect]
     Active Substance: IFOSFAMIDE
     Dosage: UNK, R-ICE REGIMEN
     Route: 065
  32. IFOSFAMIDE [Suspect]
     Active Substance: IFOSFAMIDE
     Dosage: UNK, R-ICE REGIMEN
  33. CARBOPLATIN [Suspect]
     Active Substance: CARBOPLATIN
     Indication: Diffuse large B-cell lymphoma
     Dosage: UNK, R-ICE REGIMEN
  34. CARBOPLATIN [Suspect]
     Active Substance: CARBOPLATIN
     Dosage: UNK, R-ICE REGIMEN
     Route: 065
  35. CARBOPLATIN [Suspect]
     Active Substance: CARBOPLATIN
     Dosage: UNK, R-ICE REGIMEN
     Route: 065
  36. CARBOPLATIN [Suspect]
     Active Substance: CARBOPLATIN
     Dosage: UNK, R-ICE REGIMEN
  37. ETOPOSIDE [Suspect]
     Active Substance: ETOPOSIDE
     Indication: Diffuse large B-cell lymphoma
     Dosage: UNK, R-ICE REGIMEN
  38. ETOPOSIDE [Suspect]
     Active Substance: ETOPOSIDE
     Dosage: UNK, R-ICE REGIMEN
     Route: 065
  39. ETOPOSIDE [Suspect]
     Active Substance: ETOPOSIDE
     Dosage: UNK, R-ICE REGIMEN
     Route: 065
  40. ETOPOSIDE [Suspect]
     Active Substance: ETOPOSIDE
     Dosage: UNK, R-ICE REGIMEN
  41. CYCLOPHOSPHAMIDE [Suspect]
     Active Substance: CYCLOPHOSPHAMIDE
     Indication: Diffuse large B-cell lymphoma
     Dosage: UNK, R-CHOP REGIMEN
  42. CYCLOPHOSPHAMIDE [Suspect]
     Active Substance: CYCLOPHOSPHAMIDE
     Indication: Lymphodepletion
     Dosage: UNK, R-CHOP REGIMEN
  43. CYCLOPHOSPHAMIDE [Suspect]
     Active Substance: CYCLOPHOSPHAMIDE
     Dosage: UNK, R-CHOP REGIMEN
     Route: 065
  44. CYCLOPHOSPHAMIDE [Suspect]
     Active Substance: CYCLOPHOSPHAMIDE
     Dosage: UNK, R-CHOP REGIMEN
     Route: 065
  45. CYCLOPHOSPHAMIDE [Suspect]
     Active Substance: CYCLOPHOSPHAMIDE
     Dosage: UNK, SHORT COURSE
  46. CYCLOPHOSPHAMIDE [Suspect]
     Active Substance: CYCLOPHOSPHAMIDE
     Dosage: UNK, SHORT COURSE
  47. CYCLOPHOSPHAMIDE [Suspect]
     Active Substance: CYCLOPHOSPHAMIDE
     Dosage: UNK, SHORT COURSE
     Route: 065
  48. CYCLOPHOSPHAMIDE [Suspect]
     Active Substance: CYCLOPHOSPHAMIDE
     Dosage: UNK, SHORT COURSE
     Route: 065
  49. VINCRISTINE [Suspect]
     Active Substance: VINCRISTINE
     Indication: Diffuse large B-cell lymphoma
     Dosage: UNK, R-CHOP REGIMEN
  50. VINCRISTINE [Suspect]
     Active Substance: VINCRISTINE
     Dosage: UNK, R-CHOP REGIMEN
     Route: 065
  51. VINCRISTINE [Suspect]
     Active Substance: VINCRISTINE
     Dosage: UNK, R-CHOP REGIMEN
     Route: 065
  52. VINCRISTINE [Suspect]
     Active Substance: VINCRISTINE
     Dosage: UNK, R-CHOP REGIMEN
  53. DEXAMETHASONE [Suspect]
     Active Substance: DEXAMETHASONE
     Indication: Diffuse large B-cell lymphoma
     Dosage: UNK
  54. DEXAMETHASONE [Suspect]
     Active Substance: DEXAMETHASONE
     Dosage: UNK
     Route: 065
  55. DEXAMETHASONE [Suspect]
     Active Substance: DEXAMETHASONE
     Dosage: UNK
     Route: 065
  56. DEXAMETHASONE [Suspect]
     Active Substance: DEXAMETHASONE
     Dosage: UNK

REACTIONS (2)
  - Therapy non-responder [Unknown]
  - Off label use [Unknown]
